FAERS Safety Report 4416027-X (Version None)
Quarter: 2004Q3

REPORT INFORMATION
  Report Type: 
  Country: None (occurrence: None)
  Receive Date: 20040802
  Receipt Date: 20040719
  Transmission Date: 20050211
  Serious: Yes (Hospitalization)
  Sender: FDA-Public Use
  Company Number: 207405

PATIENT
  Age: 70 Year
  Sex: Female
  Weight: 50 kg

DRUGS (4)
  1. HERCEPTIN [Suspect]
     Indication: BREAST CANCER METASTATIC
     Dosage: 97 MG, INTRAVENOUS
     Route: 042
     Dates: start: 20040522, end: 20040610
  2. CYCLOPHOSPHAMIDE [Suspect]
     Indication: BREAST CANCER
     Dosage: 888 MG
     Dates: start: 20040522, end: 20040610
  3. 5-FLOUROURACIL (FLUOUROURACIL) [Suspect]
     Indication: BREAST CANCER METASTATIC
     Dosage: 888 MG
     Dates: start: 20040522, end: 20040610
  4. METHOTREXATE [Suspect]
     Indication: BREAST CANCER METASTATIC
     Dosage: 60 MG
     Dates: start: 20040522, end: 20040610

REACTIONS (1)
  - FEBRILE NEUTROPENIA [None]
